FAERS Safety Report 19958535 (Version 1)
Quarter: 2021Q4

REPORT INFORMATION
  Report Type: Spontaneous
  Country: ES (occurrence: ES)
  Receive Date: 20211015
  Receipt Date: 20211015
  Transmission Date: 20220303
  Serious: Yes (Other)
  Sender: FDA-Public Use
  Company Number: ES-PFIZER INC-2021499465

PATIENT
  Age: 47 Year
  Sex: Male

DRUGS (1)
  1. ALPRAZOLAM [Suspect]
     Active Substance: ALPRAZOLAM
     Indication: Depression
     Dosage: UNK UNK, QD (60-100 MG, PER DAY)

REACTIONS (3)
  - Epilepsy [Recovered/Resolved]
  - Withdrawal syndrome [Unknown]
  - Drug abuse [Unknown]
